FAERS Safety Report 13463847 (Version 1)
Quarter: 2017Q2

REPORT INFORMATION
  Report Type: Spontaneous
  Country: US (occurrence: US)
  Receive Date: 20170420
  Receipt Date: 20170420
  Transmission Date: 20170830
  Serious: Yes (Other)
  Sender: FDA-Public Use
  Company Number: US-ROCHE-709283

PATIENT
  Age: 20 Year
  Sex: Male
  Weight: 61.2 kg

DRUGS (3)
  1. ACCUTANE [Suspect]
     Active Substance: ISOTRETINOIN
     Route: 048
     Dates: start: 20000403, end: 200006
  2. ADVIL [Concomitant]
     Active Substance: IBUPROFEN
     Dosage: 1-2 TIMES PER MONTH
     Route: 065
     Dates: start: 1994, end: 2004
  3. ACCUTANE [Suspect]
     Active Substance: ISOTRETINOIN
     Indication: ACNE
     Route: 048

REACTIONS (4)
  - Eczema [Unknown]
  - Inflammatory bowel disease [Unknown]
  - Colitis [Unknown]
  - Stress [Unknown]

NARRATIVE: CASE EVENT DATE: 20000211
